FAERS Safety Report 19518982 (Version 2)
Quarter: 2022Q1

REPORT INFORMATION
  Report Type: Spontaneous
  Country: GB (occurrence: GB)
  Receive Date: 20210712
  Receipt Date: 20220215
  Transmission Date: 20220423
  Serious: Yes (Death, Other)
  Sender: FDA-Public Use
  Company Number: None

PATIENT
  Age: 96 Year
  Sex: Female
  Weight: 51.71 kg

DRUGS (7)
  1. AMLODIPINE [Suspect]
     Active Substance: AMLODIPINE BESYLATE
     Indication: Hypertension
     Dosage: IN THE MORNING
     Route: 048
     Dates: start: 20200916, end: 20200918
  2. ALLOPURINOL [Concomitant]
     Active Substance: ALLOPURINOL
  3. BISOPROLOL [Concomitant]
     Active Substance: BISOPROLOL
  4. CINNARIZINE [Concomitant]
     Active Substance: CINNARIZINE
  5. DIGOXIN [Concomitant]
     Active Substance: DIGOXIN
     Dosage: TAKE IN THE MORNING
  6. SIMVASTATIN [Concomitant]
     Active Substance: SIMVASTATIN
     Dosage: TAKE AT NIGHT
  7. WARFARIN [Concomitant]
     Active Substance: WARFARIN
     Dosage: DOSE INTERVAL VARIED

REACTIONS (10)
  - Anaphylactic reaction [Fatal]
  - Decreased appetite [Unknown]
  - Back pain [Unknown]
  - Cyanosis [Unknown]
  - Dizziness [Unknown]
  - Feeling abnormal [Unknown]
  - Muscular weakness [Unknown]
  - Nausea [Unknown]
  - Swollen tongue [Unknown]
  - Vomiting [Unknown]

NARRATIVE: CASE EVENT DATE: 20200917
